FAERS Safety Report 6491943-6 (Version None)
Quarter: 2009Q4

REPORT INFORMATION
  Report Type: 
  Country: None (occurrence: None)
  Receive Date: 20091125
  Receipt Date: 20090904
  Transmission Date: 20100525
  Serious: Yes (Hospitalization)
  Sender: FDA-Public Use
  Company Number: 2009BH013643

PATIENT
  Age: 48 Year
  Sex: Male

DRUGS (19)
  1. DIANEAL [Suspect]
     Indication: PERITONEAL DIALYSIS
     Dosage: 10 L ; EVERY DAY ; IP
     Route: 033
     Dates: start: 20080601
  2. EXTRANEAL [Suspect]
     Indication: PERITONEAL DIALYSIS
     Dosage: 2 L ; EVERY DAY ; IP
     Route: 033
     Dates: start: 20080601
  3. AMARYL [Concomitant]
  4. ASPIRIN [Concomitant]
  5. CALCITRIOL [Concomitant]
  6. VALSARTAN [Concomitant]
  7. EPOGEN [Concomitant]
  8. IMDUR [Concomitant]
  9. IRON [Concomitant]
  10. LOTREL [Concomitant]
  11. MAGNESIUM OXIDE [Concomitant]
  12. NEXIUM [Concomitant]
  13. PREDNISONE [Concomitant]
  14. SEVELAMER [Concomitant]
  15. TOPROL-XL [Concomitant]
  16. TUMS [Concomitant]
  17. TYLENOL [Concomitant]
  18. VICODIN [Concomitant]
  19. SIMVASTATIN [Concomitant]

REACTIONS (1)
  - PERITONITIS BACTERIAL [None]
